FAERS Safety Report 23641438 (Version 1)
Quarter: 2024Q1

REPORT INFORMATION
  Report Type: Spontaneous
  Country: US (occurrence: US)
  Receive Date: 20240318
  Receipt Date: 20240318
  Transmission Date: 20240410
  Serious: Yes (Hospitalization)
  Sender: FDA-Public Use
  Company Number: US-CHEPLA-2024003382

PATIENT
  Age: 80 Year
  Sex: Male

DRUGS (2)
  1. OLANZAPINE [Suspect]
     Active Substance: OLANZAPINE
     Indication: Mania
     Dosage: DAILY DOSE: 10 MILLIGRAM
  2. OLANZAPINE [Suspect]
     Active Substance: OLANZAPINE
     Indication: Mania
     Dosage: DAILY DOSE: 15 MILLIGRAM

REACTIONS (6)
  - Parkinsonism [Recovering/Resolving]
  - Catatonia [Unknown]
  - Memory impairment [Unknown]
  - Hypophagia [Unknown]
  - Loss of personal independence in daily activities [Unknown]
  - Speech disorder [Unknown]
